FAERS Safety Report 8342683-X (Version None)
Quarter: 2012Q2

REPORT INFORMATION
  Report Type: 
  Country: None (occurrence: None)
  Receive Date: 20120508
  Receipt Date: 20120425
  Transmission Date: 20120825
  Serious: Yes (Other)
  Sender: FDA-Public Use
  Company Number: DE-AMGEN-DEUSP2012027062

PATIENT
  Age: 72 Year
  Sex: Male

DRUGS (7)
  1. ALLOPURINOL W/BENZBROMARONE [Concomitant]
     Dosage: UNK
  2. ALFUZOSIN HCL [Concomitant]
     Dosage: 5 MG; UNK
  3. ARCOXIA [Concomitant]
     Dosage: UNK
  4. ENBREL [Suspect]
     Indication: POLYARTHRITIS
     Dosage: UNK
  5. ENBREL [Suspect]
     Indication: RHEUMATOID ARTHRITIS
     Dosage: 25 MG, 2X/WEEK
     Dates: start: 20080422, end: 20120229
  6. RAMIPRIL [Concomitant]
     Dosage: 5MG - 0 - 2MG
  7. FINASTERIDE [Concomitant]
     Dosage: 5 MG; UNK

REACTIONS (2)
  - PANCREATIC DISORDER [None]
  - NAUSEA [None]
